FAERS Safety Report 9539247 (Version 1)
Quarter: 2013Q3

REPORT INFORMATION
  Report Type: Spontaneous
  Country: US (occurrence: US)
  Receive Date: 20130920
  Receipt Date: 20130920
  Transmission Date: 20140515
  Serious: Yes (Hospitalization)
  Sender: FDA-Public Use
  Company Number: US-BAYER-2013-113550

PATIENT
  Age: 36 Year
  Sex: Female
  Weight: 72 kg

DRUGS (14)
  1. OCELLA [Suspect]
  2. OMEPRAZOLE [Concomitant]
  3. CALCIUM CITRATE [Concomitant]
  4. CARAFATE [Concomitant]
     Dosage: UNK
     Dates: start: 20090612
  5. COLECALCIFEROL [Concomitant]
  6. FISH OIL [Concomitant]
  7. PROZAC [Concomitant]
  8. FLONASE [Concomitant]
  9. POLYETHYLENE GLYCOL [Concomitant]
  10. VITAMIN B12 + FOLIC ACID [Concomitant]
  11. BENADRYL [Concomitant]
  12. SOLUMEDROL [Concomitant]
  13. DALTEPARIN [Concomitant]
  14. MORPHIN [Concomitant]

REACTIONS (3)
  - Pulmonary embolism [None]
  - Deep vein thrombosis [None]
  - Thrombophlebitis superficial [None]
